FAERS Safety Report 24664924 (Version 1)
Quarter: 2024Q4

REPORT INFORMATION
  Report Type: Spontaneous
  Country: US (occurrence: None)
  Receive Date: 20241125
  Receipt Date: 20241125
  Transmission Date: 20250115
  Serious: Yes (Hospitalization)
  Sender: Public
  Company Number: None

PATIENT
  Age: 73 Year
  Sex: Female
  Weight: 81.8 kg

DRUGS (4)
  1. MIRVETUXIMAB SORAVTANSINE-GYNX [Suspect]
     Active Substance: MIRVETUXIMAB SORAVTANSINE-GYNX
     Dosage: OTHER FREQUENCY : EVERY 21 DAYS;?
     Route: 042
     Dates: start: 20241017
  2. OXYCODONE [Concomitant]
     Active Substance: OXYCODONE
     Dates: start: 20241124, end: 20241124
  3. MORPHINE [Concomitant]
     Active Substance: MORPHINE
     Dates: start: 20241123, end: 20241123
  4. DILAUDID [Concomitant]
     Active Substance: HYDROMORPHONE HYDROCHLORIDE
     Dates: start: 20241124, end: 20241124

REACTIONS (1)
  - Abdominal pain [None]

NARRATIVE: CASE EVENT DATE: 20241101
